FAERS Safety Report 7628102-7 (Version None)
Quarter: 2011Q3

REPORT INFORMATION
  Report Type: 
  Country: None (occurrence: None)
  Receive Date: 20110722
  Receipt Date: 20110713
  Transmission Date: 20111222
  Serious: No
  Sender: FDA-Public Use
  Company Number: US-BIOGENIDEC-2011BI026145

PATIENT
  Age: 50 Year
  Sex: Female

DRUGS (2)
  1. AVONEX [Suspect]
     Indication: MULTIPLE SCLEROSIS
     Route: 030
     Dates: start: 20110501, end: 20110701
  2. AVONEX [Suspect]
     Route: 030
     Dates: start: 20060201, end: 20060801

REACTIONS (3)
  - MOBILITY DECREASED [None]
  - FATIGUE [None]
  - HEADACHE [None]
